FAERS Safety Report 16164735 (Version 1)
Quarter: 2019Q2

REPORT INFORMATION
  Report Type: Other
  Country: FR (occurrence: FR)
  Receive Date: 20190405
  Receipt Date: 20190405
  Transmission Date: 20190711
  Serious: Yes (Death)
  Sender: FDA-Public Use
  Company Number: FR-B. BRAUN MEDICAL INC.-2065384

PATIENT
  Age: 77 Year
  Sex: Male

DRUGS (3)
  1. OXACILLIN [Concomitant]
     Active Substance: OXACILLIN SODIUM
  2. CEFAZOLIN FOR INJECTION USP AND DEXTROSE INJECTION USP 0264-3103-11 (N [Suspect]
     Active Substance: CEFAZOLIN
     Route: 042
  3. RIFAMPICIN [Concomitant]
     Active Substance: RIFAMPIN

REACTIONS (2)
  - Vitamin K deficiency [None]
  - Hypoprothrombinaemia [None]
